FAERS Safety Report 23036047 (Version 1)
Quarter: 2023Q4

REPORT INFORMATION
  Report Type: Other
  Country: JP (occurrence: US)
  Receive Date: 20231006
  Receipt Date: 20231006
  Transmission Date: 20240110
  Serious: Yes (Death)
  Sender: FDA-Public Use
  Company Number: JP-ALVOGEN-2023092345

PATIENT
  Age: 71 Year
  Sex: Female

DRUGS (1)
  1. MINOCYCLINE [Suspect]
     Active Substance: MINOCYCLINE HYDROCHLORIDE
     Indication: Pemphigoid
     Dosage: SINCE TWO YEARS

REACTIONS (3)
  - Organising pneumonia [Fatal]
  - Respiratory failure [Fatal]
  - Off label use [Unknown]
